FAERS Safety Report 8448825-X (Version None)
Quarter: 2012Q2

REPORT INFORMATION
  Report Type: 
  Country: None (occurrence: None)
  Receive Date: 20120619
  Receipt Date: 20120613
  Transmission Date: 20120825
  Serious: Yes (Hospitalization)
  Sender: FDA-Public Use
  Company Number: US-B.I. PHARMACEUTICALS,INC./RIDGEFIELD-2012-EU-03127GD

PATIENT
  Age: 8 Year
  Sex: Female

DRUGS (3)
  1. CLONIDINE [Suspect]
     Indication: ATTENTION DEFICIT/HYPERACTIVITY DISORDER
     Dosage: 0.4 MG
  2. ADDERALL 5 [Suspect]
     Dosage: 50 MG
  3. RISPERIDONE [Suspect]
     Dosage: 2 MG

REACTIONS (3)
  - MALIGNANT HYPERTENSION [None]
  - GRAND MAL CONVULSION [None]
  - WITHDRAWAL HYPERTENSION [None]
